FAERS Safety Report 7110057-5 (Version None)
Quarter: 2010Q4

REPORT INFORMATION
  Report Type: 
  Country: None (occurrence: None)
  Receive Date: 20101112
  Receipt Date: 20101027
  Transmission Date: 20110411
  Serious: Yes (Hospitalization)
  Sender: FDA-Public Use
  Company Number: 1-18212807

PATIENT
  Age: 63 Year
  Sex: Male
  Weight: 92.9874 kg

DRUGS (9)
  1. QUALAQUIN [Suspect]
     Indication: MUSCLE SPASMS
     Dosage: AS NEEDED, ORAL
     Route: 048
     Dates: start: 20080505
  2. OXYCODONE HCL [Concomitant]
  3. TRAMADOL [Concomitant]
  4. DARVOCET (PROPOXYPHENE NAPSYLATE AND ACETAMINOPHEN) [Concomitant]
  5. INDOCIN [Concomitant]
  6. SIMVASTATIN [Concomitant]
  7. EFFEXOR XR [Concomitant]
  8. AMBIEN [Concomitant]
  9. MIRAPEX [Concomitant]

REACTIONS (18)
  - CONSTIPATION [None]
  - DEPRESSION [None]
  - DIARRHOEA [None]
  - DRUG HYPERSENSITIVITY [None]
  - GENERAL PHYSICAL HEALTH DETERIORATION [None]
  - HAEMODIALYSIS [None]
  - HAEMOLYTIC URAEMIC SYNDROME [None]
  - INCORRECT DOSE ADMINISTERED [None]
  - INTERVERTEBRAL DISC OPERATION [None]
  - NAUSEA [None]
  - PAIN [None]
  - RENAL FAILURE [None]
  - RENAL FAILURE ACUTE [None]
  - RENAL TUBULAR NECROSIS [None]
  - ROTATOR CUFF REPAIR [None]
  - SURGERY [None]
  - THROMBOTIC THROMBOCYTOPENIC PURPURA [None]
  - VOMITING [None]
